FAERS Safety Report 8074077-9 (Version None)
Quarter: 2012Q1

REPORT INFORMATION
  Report Type: 
  Country: None (occurrence: None)
  Receive Date: 20120126
  Receipt Date: 20120123
  Transmission Date: 20120608
  Serious: Yes (Death)
  Sender: FDA-Public Use
  Company Number: US-CELGENEUS-163-21880-12012213

PATIENT
  Sex: Male
  Weight: 101.7 kg

DRUGS (5)
  1. OXYCODONE HCL [Concomitant]
     Route: 065
  2. GABAPENTIN [Concomitant]
     Route: 065
  3. MORPHINE [Concomitant]
     Route: 065
  4. REVLIMID [Suspect]
     Indication: MULTIPLE MYELOMA
     Dosage: 25 MILLIGRAM
     Route: 048
     Dates: start: 20111201
  5. DEXAMETHASONE [Concomitant]
     Route: 065

REACTIONS (1)
  - DEATH [None]
